FAERS Safety Report 7785678-7 (Version None)
Quarter: 2011Q3

REPORT INFORMATION
  Report Type: 
  Country: None (occurrence: None)
  Receive Date: 20110929
  Receipt Date: 20110929
  Transmission Date: 20111222
  Serious: Yes (Other)
  Sender: FDA-Public Use
  Company Number: None

PATIENT
  Sex: Male
  Weight: 99.79 kg

DRUGS (2)
  1. CIMZIA [Suspect]
     Indication: RHEUMATOID ARTHRITIS
     Dosage: 2 SHOTS
     Route: 059
     Dates: start: 20110928, end: 20110928
  2. REMICADE [Concomitant]
     Indication: RHEUMATOID ARTHRITIS
     Dosage: IV /500MG
     Route: 042
     Dates: start: 20110826, end: 20110909

REACTIONS (6)
  - HYPERSENSITIVITY [None]
  - PHARYNGEAL OEDEMA [None]
  - LIP SWELLING [None]
  - DYSPHONIA [None]
  - DYSPNOEA [None]
  - FEELING ABNORMAL [None]
